FAERS Safety Report 5350848-4 (Version None)
Quarter: 2007Q2

REPORT INFORMATION
  Report Type: 
  Country: None (occurrence: None)
  Receive Date: 20070608
  Receipt Date: 20070605
  Transmission Date: 20071010
  Serious: Yes (Other)
  Sender: FDA-Public Use
  Company Number: A0654304A

PATIENT
  Age: 79 Year
  Sex: Male

DRUGS (7)
  1. AVANDIA [Suspect]
     Dosage: 4MG PER DAY
     Route: 048
     Dates: start: 20060601
  2. METFORMIN HCL [Concomitant]
  3. GLIMEPIRIDE [Concomitant]
  4. AMILORIDE HYDROCHLORIDE [Concomitant]
  5. ACCUPRIL [Concomitant]
  6. AVODART [Concomitant]
  7. DOXAZOSIN MESYLATE [Concomitant]

REACTIONS (4)
  - DIZZINESS [None]
  - HYPOGLYCAEMIA [None]
  - OEDEMA PERIPHERAL [None]
  - WEIGHT INCREASED [None]
